FAERS Safety Report 16225236 (Version 1)
Quarter: 2019Q2

REPORT INFORMATION
  Report Type: Spontaneous
  Country: GB (occurrence: GB)
  Receive Date: 20190422
  Receipt Date: 20190422
  Transmission Date: 20190711
  Serious: Yes (Hospitalization, Other)
  Sender: FDA-Public Use
  Company Number: GB-PFIZER INC-2019163614

PATIENT
  Age: 74 Year
  Sex: Female
  Weight: 81 kg

DRUGS (3)
  1. SPIRONOLACTONE. [Suspect]
     Active Substance: SPIRONOLACTONE
     Indication: CARDIAC FAILURE
     Dosage: 25 MG, 1X/DAY
     Route: 048
     Dates: start: 20180709, end: 20190218
  2. ENALAPRIL MALEATE. [Suspect]
     Active Substance: ENALAPRIL MALEATE
     Indication: HYPERTENSION
     Dosage: 20 MG, 1X/DAY
     Route: 048
     Dates: start: 20031216
  3. TRIMETHOPRIM. [Suspect]
     Active Substance: TRIMETHOPRIM
     Indication: URINARY TRACT INFECTION
     Dosage: 400 MG, 1X/DAY
     Route: 048
     Dates: start: 20190130, end: 20190205

REACTIONS (7)
  - Malaise [Unknown]
  - Nausea [Unknown]
  - Hyperkalaemia [Recovered/Resolved]
  - Acute kidney injury [Recovered/Resolved]
  - Hyperkalaemia [Unknown]
  - Haematuria [Unknown]
  - Dizziness [Unknown]

NARRATIVE: CASE EVENT DATE: 20190130
